FAERS Safety Report 24184130 (Version 2)
Quarter: 2024Q3

REPORT INFORMATION
  Report Type: Report from Study
  Country: US (occurrence: US)
  Receive Date: 20240807
  Receipt Date: 20240814
  Transmission Date: 20241016
  Serious: Yes (Hospitalization, Other)
  Sender: GILEAD
  Company Number: US-GILEAD-2024-0683267

PATIENT
  Age: 61 Year
  Sex: Female

DRUGS (18)
  1. AMBRISENTAN [Suspect]
     Active Substance: AMBRISENTAN
     Indication: Pulmonary arterial hypertension
     Dosage: 10 MG, QD
     Route: 065
     Dates: start: 20190130
  2. AMBRISENTAN [Suspect]
     Active Substance: AMBRISENTAN
     Indication: Pulmonary hypertension
     Dosage: 10 MG, QD
     Route: 065
     Dates: start: 20210302
  3. AMBRISENTAN [Suspect]
     Active Substance: AMBRISENTAN
     Dosage: 10 MG, QD
     Route: 065
     Dates: start: 20210402
  4. BUMEX [Concomitant]
     Active Substance: BUMETANIDE
     Dosage: 1MG TAB
  5. METOLAZONE [Concomitant]
     Active Substance: METOLAZONE
     Dosage: 5MG TAB
  6. CYCLOBENZAPRINE [Concomitant]
     Active Substance: CYCLOBENZAPRINE
     Dosage: 5MG TAB
  7. SPIRONOLACTONE [Concomitant]
     Active Substance: SPIRONOLACTONE
     Dosage: 25MG TAB
  8. QUETIAPINE FUMARATE [Concomitant]
     Active Substance: QUETIAPINE FUMARATE
     Dosage: 100MG TAB
  9. LAMOTRIGINE [Concomitant]
     Active Substance: LAMOTRIGINE
     Dosage: 200MG TAB
  10. DULOXETINE [Concomitant]
     Active Substance: DULOXETINE
     Dosage: 30MG CAP
  11. ASPIRIN [Concomitant]
     Active Substance: ASPIRIN
     Dosage: 81MG TAB
  12. ADCIRCA [Concomitant]
     Active Substance: TADALAFIL
     Dosage: 20MG TAB
  13. OMEPRAZOLE [Concomitant]
     Active Substance: OMEPRAZOLE
     Dosage: 40MG TAB
  14. JARDIANCE [Concomitant]
     Active Substance: EMPAGLIFLOZIN
     Dosage: 25MG TAB
  15. LEVOTHYROXINE [Concomitant]
     Active Substance: LEVOTHYROXINE\LEVOTHYROXINE SODIUM
     Dosage: 175MCG TAB
  16. VICTOZA [Concomitant]
     Active Substance: LIRAGLUTIDE
     Dosage: 18MG
  17. TYVASO [Concomitant]
     Active Substance: TREPROSTINIL
  18. TADALAFIL [Concomitant]
     Active Substance: TADALAFIL

REACTIONS (3)
  - Lung neoplasm malignant [Unknown]
  - Dyspnoea [Unknown]
  - Thyroid disorder [Unknown]
